FAERS Safety Report 9812294 (Version 1)
Quarter: 2014Q1

REPORT INFORMATION
  Report Type: Spontaneous
  Country: US (occurrence: US)
  Receive Date: 20140113
  Receipt Date: 20140113
  Transmission Date: 20141002
  Serious: Yes (Death)
  Sender: FDA-Public Use
  Company Number: US-PFIZER INC-2014005510

PATIENT
  Age: 46 Year
  Sex: Male

DRUGS (5)
  1. SERTRALINE HCL [Suspect]
     Dosage: UNK
     Route: 048
  2. ACETYLSALICYLIC ACID [Suspect]
     Dosage: UNK
     Route: 048
  3. LAMOTRIGINE [Suspect]
     Dosage: UNK
     Route: 048
  4. CLONAZEPAM [Suspect]
     Dosage: UNK
     Route: 048
  5. DOCUSATE [Suspect]
     Dosage: UNK
     Route: 048

REACTIONS (1)
  - Completed suicide [Fatal]
